FAERS Safety Report 4402161-7 (Version None)
Quarter: 2004Q3

REPORT INFORMATION
  Report Type: 
  Country: None (occurrence: None)
  Receive Date: 20040716
  Receipt Date: 20040625
  Transmission Date: 20050211
  Serious: Yes (Other)
  Sender: FDA-Public Use
  Company Number: 2004-DE-03548DE (0)

PATIENT

DRUGS (1)
  1. VIRAMUNE [Suspect]

REACTIONS (1)
  - BOWEN'S DISEASE [None]
